FAERS Safety Report 16618684 (Version 1)
Quarter: 2019Q3

REPORT INFORMATION
  Report Type: Spontaneous
  Country: CN (occurrence: CN)
  Receive Date: 20190723
  Receipt Date: 20190723
  Transmission Date: 20191004
  Serious: Yes (Other)
  Sender: FDA-Public Use
  Company Number: CN-ELI_LILLY_AND_COMPANY-CN201907006948

PATIENT
  Sex: Female
  Weight: 37.6 kg

DRUGS (2)
  1. ZYPREXA [Suspect]
     Active Substance: OLANZAPINE
     Indication: PRODUCT USED FOR UNKNOWN INDICATION
     Dosage: 5 MG, DAILY
     Route: 048
     Dates: start: 20190524, end: 20190628
  2. ZYPREXA [Suspect]
     Active Substance: OLANZAPINE
     Dosage: 2.5 MG, DAILY
     Route: 048
     Dates: start: 20190628

REACTIONS (3)
  - Decreased appetite [Recovered/Resolved]
  - Sedation complication [Recovered/Resolved]
  - Intellectual disability [Recovered/Resolved]

NARRATIVE: CASE EVENT DATE: 20190628
